FAERS Safety Report 24990479 (Version 1)
Quarter: 2025Q1

REPORT INFORMATION
  Report Type: Report from Study
  Country: BY (occurrence: BY)
  Receive Date: 20250220
  Receipt Date: 20250220
  Transmission Date: 20250409
  Serious: Yes (Death, Life-Threatening, Hospitalization)
  Sender: MYLAN
  Company Number: BY-MYLANLABS-2025M1015151

PATIENT
  Age: 45 Year
  Sex: Male
  Weight: 72 kg

DRUGS (7)
  1. PRETOMANID [Suspect]
     Active Substance: PRETOMANID
     Indication: Tuberculosis
     Dosage: 200 MILLIGRAM, QD (OD)
     Route: 048
     Dates: start: 20220929, end: 20230316
  2. BEDAQUILINE [Suspect]
     Active Substance: BEDAQUILINE
     Indication: Tuberculosis
     Dosage: 400 MILLIGRAM, QD (OD, FOR 2 WEEKS)
     Route: 048
     Dates: start: 20220929, end: 202210
  3. BEDAQUILINE [Suspect]
     Active Substance: BEDAQUILINE
     Dosage: 200 MILLIGRAM, 3XW (TIW)
     Route: 048
     Dates: start: 202210, end: 20230316
  4. LINEZOLID [Suspect]
     Active Substance: LINEZOLID
     Indication: Tuberculosis
     Dosage: 600 MILLIGRAM, QD (OD, FOR 112 DOSES)
     Route: 048
     Dates: start: 20220929
  5. LINEZOLID [Suspect]
     Active Substance: LINEZOLID
     Dosage: 300 MILLIGRAM, QD (OD)
     Route: 048
     Dates: end: 20230316
  6. MOXIFLOXACIN [Suspect]
     Active Substance: MOXIFLOXACIN
     Indication: Tuberculosis
     Dosage: 400 MILLIGRAM, QD (OD)
     Route: 048
     Dates: start: 20220929, end: 20221018
  7. CLOFAZIMINE [Suspect]
     Active Substance: CLOFAZIMINE
     Indication: Tuberculosis
     Dosage: 100 MILLIGRAM, QD (OD)
     Route: 048
     Dates: start: 20221019, end: 20230316

REACTIONS (2)
  - HIV infection [Fatal]
  - Seizure [Fatal]

NARRATIVE: CASE EVENT DATE: 20230607
